FAERS Safety Report 4387694-4 (Version None)
Quarter: 2004Q2

REPORT INFORMATION
  Report Type: 
  Country: None (occurrence: None)
  Receive Date: 20040630
  Receipt Date: 20031117
  Transmission Date: 20050107
  Serious: No
  Sender: FDA-Public Use
  Company Number: US-GLAXOSMITHKLINE-A0440085A

PATIENT
  Age: 64 Year
  Sex: Female
  Weight: 77.7 kg

DRUGS (5)
  1. ADVAIR HFA [Suspect]
     Indication: ASTHMA
     Dosage: 1PUFF TWICE PER DAY
     Route: 055
  2. NEURONTIN [Concomitant]
     Dosage: 1000MG PER DAY
     Route: 048
  3. SINGULAIR [Concomitant]
     Dosage: 10MG UNKNOWN
     Route: 048
  4. COMBIVENT [Concomitant]
     Dosage: 2PUFF PER DAY
     Route: 055
  5. PRINIVIL [Concomitant]
     Dosage: 20MG UNKNOWN
     Route: 048

REACTIONS (2)
  - CANDIDIASIS [None]
  - TONGUE ERUPTION [None]
